FAERS Safety Report 9458140 (Version 1)
Quarter: 2013Q3

REPORT INFORMATION
  Report Type: Spontaneous
  Country: US (occurrence: None)
  Receive Date: 20130812
  Receipt Date: 20130812
  Transmission Date: 20140515
  Serious: No
  Sender: FDA-Public Use
  Company Number: None

PATIENT
  Age: 42 Year
  Sex: Male

DRUGS (2)
  1. MYCOPHENOLATE [Suspect]
     Route: 048
     Dates: end: 20050611
  2. TACROLIMUS [Suspect]
     Dosage: TACROLIMUS 1MG 4MG EVERY MORNING AND BY MOUTH
     Route: 048
     Dates: end: 20050611

REACTIONS (3)
  - Depression [None]
  - Insomnia [None]
  - Bipolar disorder [None]
